FAERS Safety Report 5625754-8 (Version None)
Quarter: 2008Q1

REPORT INFORMATION
  Report Type: 
  Country: None (occurrence: None)
  Receive Date: 20080214
  Receipt Date: 20080211
  Transmission Date: 20080703
  Serious: Yes (Other)
  Sender: FDA-Public Use
  Company Number: DE-BRISTOL-MYERS SQUIBB COMPANY-14009930

PATIENT
  Age: 31 Year
  Sex: Female

DRUGS (2)
  1. BARACLUDE [Suspect]
     Indication: HEPATITIS B
     Route: 048
     Dates: start: 20061101, end: 20071115
  2. L-THYROXINE [Concomitant]
     Indication: HYPOTHYROIDISM

REACTIONS (3)
  - ABORTION SPONTANEOUS [None]
  - INTRA-UTERINE DEATH [None]
  - PREGNANCY [None]
